FAERS Safety Report 15533060 (Version 3)
Quarter: 2018Q4

REPORT INFORMATION
  Report Type: Spontaneous
  Country: FR (occurrence: FR)
  Receive Date: 20181019
  Receipt Date: 20181114
  Transmission Date: 20190205
  Serious: Yes (Hospitalization, Other)
  Sender: FDA-Public Use
  Company Number: PHHY2018FR130753

PATIENT
  Age: 52 Year
  Sex: Male
  Weight: 70 kg

DRUGS (1)
  1. COSENTYX [Suspect]
     Active Substance: SECUKINUMAB
     Indication: PSORIASIS
     Dosage: 300 MG, QMO
     Route: 065
     Dates: start: 201507, end: 20180912

REACTIONS (6)
  - Rash [Unknown]
  - Dermo-hypodermitis [Recovered/Resolved]
  - Eczema [Recovered/Resolved]
  - Rash erythematous [Unknown]
  - Skin lesion [Recovering/Resolving]
  - Rash pruritic [Unknown]

NARRATIVE: CASE EVENT DATE: 201804
